FAERS Safety Report 6012352-X (Version None)
Quarter: 2008Q4

REPORT INFORMATION
  Report Type: 
  Country: None (occurrence: None)
  Receive Date: 20081218
  Receipt Date: 20080829
  Transmission Date: 20090506
  Serious: No
  Sender: FDA-Public Use
  Company Number: US-ASTRAZENECA-2008UW17945

PATIENT
  Age: 81 Year
  Sex: Male
  Weight: 83.9 kg

DRUGS (2)
  1. SYMBICORT [Suspect]
     Indication: RESPIRATORY DISORDER
     Dosage: 160/4.5 UG
     Route: 055
  2. SPIRIVA [Concomitant]

REACTIONS (1)
  - APHONIA [None]
